FAERS Safety Report 12797383 (Version 1)
Quarter: 2016Q3

REPORT INFORMATION
  Report Type: Report from Study
  Country: US (occurrence: US)
  Receive Date: 20160929
  Receipt Date: 20160929
  Transmission Date: 20161109
  Serious: Yes (Other)
  Sender: FDA-Public Use
  Company Number: US-ROCHE-1836066

PATIENT
  Age: 61 Year
  Sex: Female
  Weight: 77.3 kg

DRUGS (44)
  1. BEVACIZUMAB [Suspect]
     Active Substance: BEVACIZUMAB
     Route: 042
     Dates: start: 20111013
  2. BEVACIZUMAB [Suspect]
     Active Substance: BEVACIZUMAB
     Route: 042
     Dates: start: 20111103
  3. BEVACIZUMAB [Suspect]
     Active Substance: BEVACIZUMAB
     Route: 042
     Dates: start: 20120217
  4. FOSBRETABULIN TROMETHAMINE [Suspect]
     Active Substance: FOSBRETABULIN TROMETHAMINE
     Route: 042
     Dates: start: 20120420
  5. FOSBRETABULIN TROMETHAMINE [Suspect]
     Active Substance: FOSBRETABULIN TROMETHAMINE
     Route: 042
     Dates: start: 20120511
  6. FOSBRETABULIN TROMETHAMINE [Suspect]
     Active Substance: FOSBRETABULIN TROMETHAMINE
     Route: 042
     Dates: start: 20120720
  7. BEVACIZUMAB [Suspect]
     Active Substance: BEVACIZUMAB
     Route: 042
     Dates: start: 20110922
  8. BEVACIZUMAB [Suspect]
     Active Substance: BEVACIZUMAB
     Route: 042
     Dates: start: 20120420
  9. FOSBRETABULIN TROMETHAMINE [Suspect]
     Active Substance: FOSBRETABULIN TROMETHAMINE
     Route: 042
     Dates: start: 20110811
  10. FOSBRETABULIN TROMETHAMINE [Suspect]
     Active Substance: FOSBRETABULIN TROMETHAMINE
     Route: 042
     Dates: start: 20120127
  11. FOSBRETABULIN TROMETHAMINE [Suspect]
     Active Substance: FOSBRETABULIN TROMETHAMINE
     Route: 042
     Dates: start: 20120601
  12. BEVACIZUMAB [Suspect]
     Active Substance: BEVACIZUMAB
     Route: 042
     Dates: start: 20110811
  13. BEVACIZUMAB [Suspect]
     Active Substance: BEVACIZUMAB
     Route: 042
     Dates: start: 20120629
  14. BEVACIZUMAB [Suspect]
     Active Substance: BEVACIZUMAB
     Route: 042
     Dates: start: 20120720
  15. FOSBRETABULIN TROMETHAMINE [Suspect]
     Active Substance: FOSBRETABULIN TROMETHAMINE
     Route: 042
     Dates: start: 20111123
  16. FOSBRETABULIN TROMETHAMINE [Suspect]
     Active Substance: FOSBRETABULIN TROMETHAMINE
     Route: 042
     Dates: start: 20120309
  17. BEVACIZUMAB [Suspect]
     Active Substance: BEVACIZUMAB
     Indication: OVARIAN EPITHELIAL CANCER
     Dosage: OVER 30-90 MINUTES
     Route: 042
     Dates: start: 20110609
  18. BEVACIZUMAB [Suspect]
     Active Substance: BEVACIZUMAB
     Route: 042
     Dates: start: 20120810
  19. FOSBRETABULIN TROMETHAMINE [Suspect]
     Active Substance: FOSBRETABULIN TROMETHAMINE
     Route: 042
     Dates: start: 20110630
  20. FOSBRETABULIN TROMETHAMINE [Suspect]
     Active Substance: FOSBRETABULIN TROMETHAMINE
     Route: 042
     Dates: start: 20120105
  21. FOSBRETABULIN TROMETHAMINE [Suspect]
     Active Substance: FOSBRETABULIN TROMETHAMINE
     Route: 042
     Dates: start: 20120629
  22. BEVACIZUMAB [Suspect]
     Active Substance: BEVACIZUMAB
     Route: 042
     Dates: start: 20110721
  23. BEVACIZUMAB [Suspect]
     Active Substance: BEVACIZUMAB
     Route: 042
     Dates: start: 20120105
  24. BEVACIZUMAB [Suspect]
     Active Substance: BEVACIZUMAB
     Dosage: LAST TREATMENT DRUG
     Route: 042
     Dates: start: 20120831
  25. FOSBRETABULIN TROMETHAMINE [Suspect]
     Active Substance: FOSBRETABULIN TROMETHAMINE
     Route: 042
     Dates: start: 20120810
  26. BEVACIZUMAB [Suspect]
     Active Substance: BEVACIZUMAB
     Route: 042
     Dates: start: 20110630
  27. BEVACIZUMAB [Suspect]
     Active Substance: BEVACIZUMAB
     Route: 042
     Dates: start: 20120511
  28. BEVACIZUMAB [Suspect]
     Active Substance: BEVACIZUMAB
     Route: 042
     Dates: start: 20120601
  29. FOSBRETABULIN TROMETHAMINE [Suspect]
     Active Substance: FOSBRETABULIN TROMETHAMINE
     Indication: OVARIAN EPITHELIAL CANCER
     Dosage: OVER 10-20 MINUTES ON DAY 1
     Route: 042
     Dates: start: 20110609
  30. FOSBRETABULIN TROMETHAMINE [Suspect]
     Active Substance: FOSBRETABULIN TROMETHAMINE
     Route: 042
     Dates: start: 20111013
  31. FOSBRETABULIN TROMETHAMINE [Suspect]
     Active Substance: FOSBRETABULIN TROMETHAMINE
     Dosage: LAST TREATMENT
     Route: 042
     Dates: start: 20120831
  32. BEVACIZUMAB [Suspect]
     Active Substance: BEVACIZUMAB
     Route: 042
     Dates: start: 20111123
  33. BEVACIZUMAB [Suspect]
     Active Substance: BEVACIZUMAB
     Route: 042
     Dates: start: 20120309
  34. BEVACIZUMAB [Suspect]
     Active Substance: BEVACIZUMAB
     Route: 042
     Dates: start: 20120330
  35. FOSBRETABULIN TROMETHAMINE [Suspect]
     Active Substance: FOSBRETABULIN TROMETHAMINE
     Route: 042
     Dates: start: 20110901
  36. FOSBRETABULIN TROMETHAMINE [Suspect]
     Active Substance: FOSBRETABULIN TROMETHAMINE
     Route: 042
     Dates: start: 20110922
  37. FOSBRETABULIN TROMETHAMINE [Suspect]
     Active Substance: FOSBRETABULIN TROMETHAMINE
     Route: 042
     Dates: start: 20111103
  38. FOSBRETABULIN TROMETHAMINE [Suspect]
     Active Substance: FOSBRETABULIN TROMETHAMINE
     Route: 042
     Dates: start: 20120217
  39. BEVACIZUMAB [Suspect]
     Active Substance: BEVACIZUMAB
     Route: 042
     Dates: start: 20110901
  40. BEVACIZUMAB [Suspect]
     Active Substance: BEVACIZUMAB
     Route: 042
     Dates: start: 20111215
  41. BEVACIZUMAB [Suspect]
     Active Substance: BEVACIZUMAB
     Route: 042
     Dates: start: 20120127
  42. FOSBRETABULIN TROMETHAMINE [Suspect]
     Active Substance: FOSBRETABULIN TROMETHAMINE
     Route: 042
     Dates: start: 20110721
  43. FOSBRETABULIN TROMETHAMINE [Suspect]
     Active Substance: FOSBRETABULIN TROMETHAMINE
     Route: 042
     Dates: start: 20111215
  44. FOSBRETABULIN TROMETHAMINE [Suspect]
     Active Substance: FOSBRETABULIN TROMETHAMINE
     Route: 042
     Dates: start: 20120330

REACTIONS (3)
  - Hypertension [Unknown]
  - Alanine aminotransferase increased [Unknown]
  - Platelet count decreased [Unknown]
